FAERS Safety Report 25753490 (Version 1)
Quarter: 2025Q3

REPORT INFORMATION
  Report Type: Spontaneous
  Country: US (occurrence: US)
  Receive Date: 20250903
  Receipt Date: 20250903
  Transmission Date: 20251020
  Serious: Yes (Death, Other)
  Sender: CIPLA
  Company Number: US-BMS-IMIDS-REMS-SI-1755793392480

PATIENT

DRUGS (1)
  1. LENALIDOMIDE [Suspect]
     Active Substance: LENALIDOMIDE
     Indication: Product used for unknown indication
     Route: 065
     Dates: start: 202501

REACTIONS (1)
  - Death [Fatal]

NARRATIVE: CASE EVENT DATE: 20250802
